FAERS Safety Report 7771093-9 (Version None)
Quarter: 2011Q3

REPORT INFORMATION
  Report Type: 
  Country: None (occurrence: None)
  Receive Date: 20110922
  Receipt Date: 20110916
  Transmission Date: 20111222
  Serious: Yes (Other)
  Sender: FDA-Public Use
  Company Number: CA-PFIZER INC-2011183921

PATIENT
  Age: 77 Year
  Sex: Female

DRUGS (7)
  1. BRINZOLAMIDE/TIMOLOL [Concomitant]
     Indication: GLAUCOMA
     Dosage: ONE DROP TWICE DAILY
     Dates: start: 20110501
  2. XALATAN [Suspect]
     Indication: GLAUCOMA
     Dosage: 1 GTT IN BOTH EYES, 1X/DAY
     Route: 047
  3. CELEBREX [Concomitant]
     Indication: ARTHRITIS
     Dosage: 200 MG, 1X/DAY
  4. INSULIN HUMAN INJECTION, ISOPHANE [Concomitant]
     Indication: DIABETES MELLITUS
     Dosage: 17 IU, 1X/DAY
  5. LIPITOR [Concomitant]
     Indication: BLOOD CHOLESTEROL
     Dosage: 20 MG, 1X/DAY
  6. AMLODIPINE [Concomitant]
     Indication: BLOOD PRESSURE
     Dosage: 5 MG, 1X/DAY
  7. VALSARTAN [Concomitant]
     Indication: BLOOD PRESSURE
     Dosage: 60 MG, 1X/DAY

REACTIONS (1)
  - GLAUCOMA [None]
